FAERS Safety Report 18558461 (Version 1)
Quarter: 2020Q4

REPORT INFORMATION
  Report Type: Spontaneous
  Country: US (occurrence: US)
  Receive Date: 20201127
  Receipt Date: 20201127
  Transmission Date: 20210114
  Serious: Yes (Hospitalization)
  Sender: FDA-Public Use
  Company Number: None

PATIENT
  Age: 77 Year
  Sex: Male

DRUGS (1)
  1. BAMLANIVIMAB. [Suspect]
     Active Substance: BAMLANIVIMAB
     Indication: SARS-COV-2 TEST POSITIVE
     Dates: start: 20201125, end: 20201125

REACTIONS (6)
  - Heart rate increased [None]
  - Respiratory rate increased [None]
  - Fibrin D dimer increased [None]
  - Atrial fibrillation [None]
  - Oxygen saturation decreased [None]
  - Blood lactic acid increased [None]

NARRATIVE: CASE EVENT DATE: 20201127
